FAERS Safety Report 9475966 (Version 3)
Quarter: 2013Q4

REPORT INFORMATION
  Report Type: Spontaneous
  Country: US (occurrence: US)
  Receive Date: 20130826
  Receipt Date: 20131202
  Transmission Date: 20140711
  Serious: Yes (Other)
  Sender: FDA-Public Use
  Company Number: US-PFIZER INC-2013244504

PATIENT
  Age: 64 Year
  Sex: Female
  Weight: 96.6 kg

DRUGS (3)
  1. LYRICA [Suspect]
     Indication: NEUROPATHY PERIPHERAL
     Dosage: 100 MG, 3X/DAY
     Route: 048
  2. LYRICA [Suspect]
     Indication: PERIPHERAL NERVE INJURY
  3. LYRICA [Suspect]
     Indication: NERVE INJURY

REACTIONS (1)
  - Back disorder [Unknown]
